FAERS Safety Report 13419577 (Version 2)
Quarter: 2017Q2

REPORT INFORMATION
  Report Type: Report from Study
  Country: US (occurrence: US)
  Receive Date: 20170407
  Receipt Date: 20170428
  Transmission Date: 20170830
  Serious: Yes (Hospitalization, Other)
  Sender: FDA-Public Use
  Company Number: US-GILEAD-2017-0266446

PATIENT
  Age: 92 Year
  Sex: Female
  Weight: 56.24 kg

DRUGS (19)
  1. BUMETANIDE. [Concomitant]
     Active Substance: BUMETANIDE
  2. AMBRISENTAN [Suspect]
     Active Substance: AMBRISENTAN
     Indication: PULMONARY HYPERTENSION
  3. PROTONIX [Concomitant]
     Active Substance: PANTOPRAZOLE SODIUM
  4. POTASSIUM CHLORATE [Concomitant]
     Active Substance: POTASSIUM CHLORATE
  5. DESOXIMETASONE. [Concomitant]
     Active Substance: DESOXIMETASONE
  6. METOPROLOL SUCCINATE. [Concomitant]
     Active Substance: METOPROLOL SUCCINATE
  7. CLONIDINE. [Concomitant]
     Active Substance: CLONIDINE
  8. LOVASTATIN. [Concomitant]
     Active Substance: LOVASTATIN
  9. WARFARIN [Concomitant]
     Active Substance: WARFARIN
  10. AMBRISENTAN [Suspect]
     Active Substance: AMBRISENTAN
     Indication: SCLERODERMA
     Dosage: 5 MG, QD
     Route: 065
  11. FUROSEMIDE. [Concomitant]
     Active Substance: FUROSEMIDE
  12. LEVOTHYROXINE. [Concomitant]
     Active Substance: LEVOTHYROXINE
  13. PATANOL [Concomitant]
     Active Substance: OLOPATADINE HYDROCHLORIDE
  14. HYDRALAZINE [Concomitant]
     Active Substance: HYDRALAZINE HYDROCHLORIDE
  15. LIDOCAINE 5% EXTRA [Concomitant]
  16. MOMETASONE [Concomitant]
     Active Substance: MOMETASONE
  17. NYSTATIN AND TRIAMCINOLONE [Concomitant]
     Active Substance: NYSTATIN\TRIAMCINOLONE ACETONIDE
  18. TRIDERM                            /00031902/ [Concomitant]
  19. CONJUGATED ESTROGENS [Concomitant]
     Active Substance: ESTROGENS, CONJUGATED

REACTIONS (2)
  - Haemorrhage [Recovered/Resolved]
  - Diverticulitis [Recovered/Resolved]
